FAERS Safety Report 8069188-8 (Version None)
Quarter: 2012Q1

REPORT INFORMATION
  Report Type: 
  Country: None (occurrence: None)
  Receive Date: 20120125
  Receipt Date: 20120111
  Transmission Date: 20120608
  Serious: Yes (Other)
  Sender: FDA-Public Use
  Company Number: DE-UCBSA-047263

PATIENT
  Age: 65 Year
  Sex: Female

DRUGS (7)
  1. METHOTREXATE [Concomitant]
     Indication: MUSCULOSKELETAL PAIN
     Dosage: FROM:}10 YEARS
     Route: 048
  2. FOLIC ACID [Concomitant]
     Indication: MUSCULOSKELETAL PAIN
     Dosage: FROM: }10 YEARS
     Route: 048
  3. CARMEN ACE [Concomitant]
     Route: 048
  4. LEVOTHYROXINE SODIUM [Concomitant]
     Indication: HYPOTHYROIDISM
     Route: 048
  5. CONCOR 5 [Concomitant]
     Indication: HYPERTENSION
     Route: 048
  6. CIMZIA [Suspect]
     Indication: RHEUMATOID ARTHRITIS
     Route: 058
     Dates: start: 20101115, end: 20110927
  7. PREDNISOLONE [Concomitant]
     Indication: MUSCULOSKELETAL PAIN
     Dosage: FROM: }10 YEARS
     Route: 048

REACTIONS (2)
  - SENSORY DISTURBANCE [None]
  - OEDEMA PERIPHERAL [None]
